FAERS Safety Report 4895645-9 (Version None)
Quarter: 2006Q1

REPORT INFORMATION
  Report Type: 
  Country: None (occurrence: None)
  Receive Date: 20060125
  Receipt Date: 20060113
  Transmission Date: 20060701
  Serious: Yes (Hospitalization, Other)
  Sender: FDA-Public Use
  Company Number: KII-2006-0020710

PATIENT
  Age: 21 Month
  Sex: Male

DRUGS (1)
  1. OXYCODONE HCL [Suspect]
     Indication: ACCIDENTAL EXPOSURE
     Dosage: ORAL
     Route: 048
     Dates: start: 20051220, end: 20051220

REACTIONS (3)
  - ACCIDENTAL DRUG INTAKE BY CHILD [None]
  - MIOSIS [None]
  - SOMNOLENCE [None]
